FAERS Safety Report 23552755 (Version 1)
Quarter: 2024Q1

REPORT INFORMATION
  Report Type: Spontaneous
  Country: US (occurrence: None)
  Receive Date: 20240221
  Receipt Date: 20240221
  Transmission Date: 20240410
  Serious: Yes (unspecified)
  Sender: FDA-Public Use
  Company Number: None

PATIENT
  Age: 60 Year
  Sex: Male

DRUGS (2)
  1. HERBALS\TETRAHYDROCANNABINOL UNSPECIFIED [Suspect]
     Active Substance: HERBALS\TETRAHYDROCANNABINOL UNSPECIFIED
  2. LITHIUM CARBONATE [Suspect]
     Active Substance: LITHIUM CARBONATE

REACTIONS (2)
  - Mental status changes [None]
  - Near death experience [None]

NARRATIVE: CASE EVENT DATE: 20240112
